FAERS Safety Report 6347811-3 (Version None)
Quarter: 2009Q3

REPORT INFORMATION
  Report Type: 
  Country: None (occurrence: None)
  Receive Date: 20090910
  Receipt Date: 20090903
  Transmission Date: 20100115
  Serious: Yes (Other)
  Sender: FDA-Public Use
  Company Number: B0579274A

PATIENT
  Sex: Female

DRUGS (3)
  1. PAXIL [Suspect]
     Indication: DEPRESSION
     Route: 048
     Dates: start: 20060927
  2. DEPAS [Concomitant]
     Indication: INSOMNIA
     Dosage: .5MG PER DAY
     Route: 048
  3. MEILAX [Concomitant]
     Indication: INSOMNIA
     Dosage: 1MG PER DAY
     Route: 048

REACTIONS (4)
  - DIZZINESS [None]
  - HEPATIC CONGESTION [None]
  - PALPITATIONS [None]
  - STRESS CARDIOMYOPATHY [None]
